FAERS Safety Report 23904215 (Version 1)
Quarter: 2024Q2

REPORT INFORMATION
  Report Type: Spontaneous
  Country: CA (occurrence: CA)
  Receive Date: 20240527
  Receipt Date: 20240527
  Transmission Date: 20240717
  Serious: Yes (Hospitalization)
  Sender: FDA-Public Use
  Company Number: CA-PFIZER INC-202400102000

PATIENT

DRUGS (3)
  1. INFLECTRA [Suspect]
     Active Substance: INFLIXIMAB-DYYB
     Indication: Crohn^s disease
     Dosage: 460 MG, EVERY 8 WEEKS
     Route: 042
     Dates: start: 20240229
  2. INFLECTRA [Suspect]
     Active Substance: INFLIXIMAB-DYYB
     Dosage: 500 MG (RECEIVED 500 MG DOSE ON 03MAY2024 INFUSION, WHILE PATIENT WAS PRESCRIBED 460 MG)
     Route: 042
     Dates: start: 20240503
  3. BILASTINE [Concomitant]
     Active Substance: BILASTINE
     Dosage: UNK

REACTIONS (4)
  - Condition aggravated [Recovered/Resolved]
  - Therapeutic response shortened [Unknown]
  - Arthralgia [Unknown]
  - Incorrect dose administered [Unknown]

NARRATIVE: CASE EVENT DATE: 20240428
